FAERS Safety Report 8831390 (Version 1)
Quarter: 2012Q4

REPORT INFORMATION
  Report Type: 
  Country: HU (occurrence: HU)
  Receive Date: 20121009
  Receipt Date: 20121009
  Transmission Date: 20130627
  Serious: Yes (Death)
  Sender: FDA-Public Use
  Company Number: US-MEDICIS-2012P1059963

PATIENT
  Age: 24 Year

DRUGS (1)
  1. SODIUM PHENYLBUTYRATE [Suspect]

REACTIONS (1)
  - Pneumonia [Fatal]
